FAERS Safety Report 5226831-6 (Version None)
Quarter: 2007Q1

REPORT INFORMATION
  Report Type: 
  Country: None (occurrence: None)
  Receive Date: 20070130
  Receipt Date: 20070117
  Transmission Date: 20070707
  Serious: Yes (Hospitalization)
  Sender: FDA-Public Use
  Company Number: 2007PV028564

PATIENT
  Age: 54 Year
  Sex: Female
  Weight: 112.0385 kg

DRUGS (7)
  1. BYETTA [Suspect]
     Indication: DIABETES MELLITUS NON-INSULIN-DEPENDENT
     Dosage: 10 MCG; BID; SC; SEE IMAGE
     Route: 058
     Dates: start: 20060401, end: 20070109
  2. BYETTA [Suspect]
     Indication: DIABETES MELLITUS NON-INSULIN-DEPENDENT
     Dosage: 10 MCG; BID; SC; SEE IMAGE
     Route: 058
     Dates: start: 20070110
  3. METFORMIN HCL [Concomitant]
  4. LISINOPRIL [Concomitant]
  5. HYDROCHLOROTHIAZIDE [Concomitant]
  6. POTASSIUM ACETATE [Concomitant]
  7. MULTIVIT WITH MINERALS [Concomitant]

REACTIONS (8)
  - ANAEMIA [None]
  - BLOOD GLUCOSE INCREASED [None]
  - BURSITIS [None]
  - DYSPEPSIA [None]
  - PHARMACEUTICAL PRODUCT COMPLAINT [None]
  - POST PROCEDURAL COMPLICATION [None]
  - SCIATICA [None]
  - WEIGHT DECREASED [None]
